FAERS Safety Report 9289264 (Version 1)
Quarter: 2013Q2

REPORT INFORMATION
  Report Type: Spontaneous
  Country: US (occurrence: US)
  Receive Date: 20130514
  Receipt Date: 20130514
  Transmission Date: 20140414
  Serious: No
  Sender: FDA-Public Use
  Company Number: US-ABBOTT-12P-163-0969824-00

PATIENT
  Age: 40 Year
  Sex: Female

DRUGS (2)
  1. PROMETRIUM [Suspect]
     Indication: IN VITRO FERTILISATION
     Route: 067
     Dates: start: 20120804, end: 20120807
  2. PROMETRIUM [Suspect]
     Indication: PREGNANCY

REACTIONS (8)
  - Off label use [Unknown]
  - Vulvovaginal discomfort [Recovered/Resolved]
  - Cervical friability [Recovered/Resolved]
  - Pain [Recovered/Resolved]
  - Vaginal haemorrhage [Recovered/Resolved]
  - Vaginal erosion [Recovered/Resolved]
  - Vulvar erosion [Recovered/Resolved]
  - Complication of pregnancy [Not Recovered/Not Resolved]
